FAERS Safety Report 6471918-3 (Version None)
Quarter: 2009Q4

REPORT INFORMATION
  Report Type: 
  Country: None (occurrence: None)
  Receive Date: 20091203
  Receipt Date: 20091119
  Transmission Date: 20100525
  Serious: Yes (Life-Threatening, Other)
  Sender: FDA-Public Use
  Company Number: CZ-MYLANLABS-2009S1020107

PATIENT
  Age: 52 Year
  Sex: Female

DRUGS (6)
  1. MIRTAZAPINE [Suspect]
     Indication: DEPRESSION
     Route: 048
     Dates: start: 20090211, end: 20090212
  2. AGEN [Concomitant]
     Indication: HYPERTENSION
  3. LOZAP /00661201/ [Concomitant]
     Indication: HYPERTENSION
  4. FLUVOXAMINE MALEATE [Concomitant]
     Indication: MENTAL DISORDER
  5. TRAZODONE /00447702/ [Concomitant]
     Indication: MENTAL DISORDER
  6. SULPIRIDE [Concomitant]
     Indication: MENTAL DISORDER

REACTIONS (1)
  - HYPERTENSIVE CRISIS [None]
